FAERS Safety Report 23673637 (Version 2)
Quarter: 2024Q3

REPORT INFORMATION
  Report Type: Spontaneous
  Country: US (occurrence: US)
  Receive Date: 20240326
  Receipt Date: 20240713
  Transmission Date: 20241016
  Serious: No
  Sender: LUPIN
  Company Number: US-LUPIN PHARMACEUTICALS INC.-2024-02451

PATIENT

DRUGS (1)
  1. ALBUTEROL SULFATE [Suspect]
     Active Substance: ALBUTEROL SULFATE
     Indication: Pneumonia
     Dosage: UNK ( 2 PUFFS 4 TIMES A DAY AS NEEDED)
     Dates: start: 20240312

REACTIONS (4)
  - Device delivery system issue [Unknown]
  - Product use in unapproved indication [Unknown]
  - Drug dose omission by device [Unknown]
  - No adverse event [Unknown]
